FAERS Safety Report 23652690 (Version 1)
Quarter: 2024Q1

REPORT INFORMATION
  Report Type: Spontaneous
  Country: US (occurrence: US)
  Receive Date: 20240320
  Receipt Date: 20240320
  Transmission Date: 20240410
  Serious: Yes (Hospitalization, Other)
  Sender: FDA-Public Use
  Company Number: US-Accord-413698

PATIENT
  Age: 65 Year
  Sex: Female

DRUGS (2)
  1. BENDAMUSTINE [Suspect]
     Active Substance: BENDAMUSTINE
     Indication: Lymphoma
     Dates: start: 20230923
  2. RITUXIMAB [Suspect]
     Active Substance: RITUXIMAB
     Indication: Lymphoma
     Dates: start: 20230923

REACTIONS (2)
  - Aplastic anaemia [Recovered/Resolved]
  - Escherichia bacteraemia [Unknown]

NARRATIVE: CASE EVENT DATE: 20230101
